FAERS Safety Report 5290973-X (Version None)
Quarter: 2007Q2

REPORT INFORMATION
  Report Type: 
  Country: None (occurrence: None)
  Receive Date: 20070409
  Receipt Date: 20070328
  Transmission Date: 20071010
  Serious: Yes (Other)
  Sender: FDA-Public Use
  Company Number: CH-ROCHE-490365

PATIENT
  Age: 50 Year
  Sex: Male

DRUGS (8)
  1. PEGASYS [Suspect]
     Route: 058
     Dates: start: 20070315
  2. TORSEMIDE [Concomitant]
     Route: 048
  3. CARVEDILOL [Concomitant]
     Route: 048
  4. CALCIUM CARBONATE [Concomitant]
     Route: 048
  5. VITAMINE D [Concomitant]
     Route: 048
  6. ASPIRIN [Concomitant]
     Route: 048
  7. VALCYTE [Concomitant]
     Route: 048
  8. HUMALOG [Concomitant]

REACTIONS (2)
  - HAEMATURIA [None]
  - RHABDOMYOLYSIS [None]
